FAERS Safety Report 7070003-X (Version None)
Quarter: 2010Q4

REPORT INFORMATION
  Report Type: 
  Country: None (occurrence: None)
  Receive Date: 20101028
  Receipt Date: 20100816
  Transmission Date: 20110411
  Serious: No
  Sender: FDA-Public Use
  Company Number: US-WYE-H16953810

PATIENT
  Age: 70 Year
  Sex: Female
  Weight: 63.56 kg

DRUGS (1)
  1. ADVIL [Suspect]
     Indication: ARTHRALGIA
     Dosage: 1 TABLET AS NEEDED
     Route: 048
     Dates: start: 19900101

REACTIONS (3)
  - HYPOAESTHESIA FACIAL [None]
  - PARAESTHESIA [None]
  - SWELLING FACE [None]
